FAERS Safety Report 6345813-4 (Version None)
Quarter: 2009Q3

REPORT INFORMATION
  Report Type: 
  Country: None (occurrence: None)
  Receive Date: 20090909
  Receipt Date: 20090826
  Transmission Date: 20100115
  Serious: Yes (Other)
  Sender: FDA-Public Use
  Company Number: DE-GENENTECH-289689

PATIENT
  Age: 17 Year
  Sex: Male

DRUGS (5)
  1. AVASTIN [Suspect]
     Indication: TESTICULAR GERM CELL CANCER
     Dosage: UNK
     Route: 065
  2. INTERFERON ALFA-2B [Suspect]
     Indication: TESTICULAR GERM CELL CANCER
     Dosage: 1.5 A?G/M2, UNK
     Route: 058
  3. VINBLASTINE [Suspect]
     Indication: TESTICULAR GERM CELL CANCER
     Dosage: 6 MG/KG, 1/WEEK
     Route: 065
  4. THALIDOMIDE [Suspect]
     Indication: TESTICULAR GERM CELL CANCER
     Dosage: 100 MG/M2, BID
     Route: 065
  5. PARACETAMOL [Concomitant]
     Indication: DRUG USE FOR UNKNOWN INDICATION
     Dosage: UNK

REACTIONS (2)
  - TRANSIENT ISCHAEMIC ATTACK [None]
  - VOCAL CORD PARALYSIS [None]
